FAERS Safety Report 24594562 (Version 1)
Quarter: 2024Q4

REPORT INFORMATION
  Report Type: Spontaneous
  Country: FR (occurrence: FR)
  Receive Date: 20241108
  Receipt Date: 20241108
  Transmission Date: 20250114
  Serious: Yes (Other)
  Sender: B BRAUN
  Company Number: FR-B.Braun Medical Inc.-2164727

PATIENT
  Age: 34 Year
  Sex: Male

DRUGS (5)
  1. ACETAMINOPHEN [Suspect]
     Active Substance: ACETAMINOPHEN
  2. DRONABINOL [Suspect]
     Active Substance: DRONABINOL
  3. CAFFEINE [Suspect]
     Active Substance: CAFFEINE
  4. COCAINE [Suspect]
     Active Substance: COCAINE
  5. HEROIN [Suspect]
     Active Substance: DIAMORPHINE

REACTIONS (4)
  - Drug abuse [Not Recovered/Not Resolved]
  - Off label use [Not Recovered/Not Resolved]
  - Headache [Not Recovered/Not Resolved]
  - Hyperhidrosis [Not Recovered/Not Resolved]
